FAERS Safety Report 6976603-7 (Version None)
Quarter: 2010Q3

REPORT INFORMATION
  Report Type: 
  Country: None (occurrence: None)
  Receive Date: 20100824
  Receipt Date: 20100525
  Transmission Date: 20110219
  Serious: No
  Sender: FDA-Public Use
  Company Number: 309636

PATIENT
  Age: 64 Year
  Sex: Male

DRUGS (2)
  1. VICTOZA [Suspect]
     Indication: TYPE 2 DIABETES MELLITUS
     Dosage: 0.6 U, QD, SUBCUTANEOUS,1.8 MG,QD, SC
     Route: 058
     Dates: start: 20100522, end: 20100523
  2. VICTOZA [Suspect]
     Indication: TYPE 2 DIABETES MELLITUS
     Dosage: 0.6 U, QD, SUBCUTANEOUS,1.8 MG,QD, SC
     Route: 058
     Dates: start: 20100524

REACTIONS (2)
  - DIZZINESS [None]
  - INCORRECT DOSE ADMINISTERED [None]
